FAERS Safety Report 7809364-X (Version None)
Quarter: 2011Q4

REPORT INFORMATION
  Report Type: 
  Country: None (occurrence: None)
  Receive Date: 20111012
  Receipt Date: 20111006
  Transmission Date: 20120403
  Serious: Yes (Hospitalization)
  Sender: FDA-Public Use
  Company Number: US-BAYER-2011-096264

PATIENT

DRUGS (1)
  1. NEXAVAR [Suspect]

REACTIONS (2)
  - CONVULSION [None]
  - DYSPHAGIA [None]
